FAERS Safety Report 16782465 (Version 4)
Quarter: 2019Q4

REPORT INFORMATION
  Report Type: Report from Study
  Country: MX (occurrence: MX)
  Receive Date: 20190906
  Receipt Date: 20191029
  Transmission Date: 20200122
  Serious: Yes (Life-Threatening)
  Sender: FDA-Public Use
  Company Number: MX-CELGENEUS-MEX-20190901021

PATIENT
  Age: 71 Year
  Sex: Female

DRUGS (7)
  1. PANTOPRAZOLE SODIUM SESQUIHYDRATE [Concomitant]
     Active Substance: PANTOPRAZOLE SODIUM
     Indication: PRODUCT USED FOR UNKNOWN INDICATION
     Route: 065
     Dates: start: 20190729, end: 20190729
  2. ONDANSETRON [Concomitant]
     Active Substance: ONDANSETRON
     Indication: PRODUCT USED FOR UNKNOWN INDICATION
     Route: 065
     Dates: start: 20190729, end: 20190729
  3. MLN4924 [Suspect]
     Active Substance: PEVONEDISTAT
     Indication: MYELOID LEUKAEMIA
     Route: 065
     Dates: start: 20190325
  4. KETOROLAC [Concomitant]
     Active Substance: KETOROLAC TROMETHAMINE
     Indication: PRODUCT USED FOR UNKNOWN INDICATION
     Route: 065
     Dates: start: 20190731, end: 20190804
  5. AZACITIDINE. [Suspect]
     Active Substance: AZACITIDINE
     Indication: MYELOID LEUKAEMIA
     Route: 065
     Dates: start: 20190325
  6. AMBROXOL HCL/LORATADINE [Concomitant]
     Indication: PRODUCT USED FOR UNKNOWN INDICATION
     Route: 065
     Dates: start: 20190802, end: 20190806
  7. ERDOSTEINA [Concomitant]
     Indication: PRODUCT USED FOR UNKNOWN INDICATION
     Route: 065
     Dates: start: 20190802, end: 20190806

REACTIONS (2)
  - Thrombocytopenia [Recovered/Resolved]
  - Neutropenia [Recovered/Resolved]

NARRATIVE: CASE EVENT DATE: 20190826
